FAERS Safety Report 8260866-4 (Version None)
Quarter: 2012Q2

REPORT INFORMATION
  Report Type: 
  Country: None (occurrence: None)
  Receive Date: 20120402
  Receipt Date: 20120324
  Transmission Date: 20120825
  Serious: Yes (Other)
  Sender: FDA-Public Use
  Company Number: 2012-029597

PATIENT

DRUGS (1)
  1. BACTINE LIQUID (BENZALKONIUMCHLORIDE + LIDOCAINE HYDROCHLORIDE) CUTANE [Suspect]
     Dosage: ,OPHTHALMIC
     Route: 047

REACTIONS (2)
  - ACCIDENTAL EXPOSURE [None]
  - BLINDNESS [None]
